APPROVED DRUG PRODUCT: X-TROZINE
Active Ingredient: PHENDIMETRAZINE TARTRATE
Strength: 35MG
Dosage Form/Route: CAPSULE;ORAL
Application: A087394 | Product #001
Applicant: SHIRE RICHWOOD INC
Approved: Sep 22, 1982 | RLD: No | RS: No | Type: DISCN